FAERS Safety Report 11213506 (Version 1)
Quarter: 2015Q2

REPORT INFORMATION
  Report Type: Report from Study
  Country: BR (occurrence: BR)
  Receive Date: 20150623
  Receipt Date: 20150623
  Transmission Date: 20150821
  Serious: Yes (Other)
  Sender: FDA-Public Use
  Company Number: PHHY2015BR071211

PATIENT
  Sex: Female
  Weight: 76 kg

DRUGS (1)
  1. DIOVAN [Suspect]
     Active Substance: VALSARTAN
     Indication: BLOOD PRESSURE INCREASED
     Dosage: 1 DF, QD (IN THE MORNING)
     Route: 065

REACTIONS (2)
  - Pain in extremity [Recovered/Resolved]
  - Bursitis [Recovered/Resolved]
